FAERS Safety Report 9458679 (Version 1)
Quarter: 2013Q3

REPORT INFORMATION
  Report Type: Spontaneous
  Country: US (occurrence: None)
  Receive Date: 20130812
  Receipt Date: 20130812
  Transmission Date: 20140515
  Serious: Yes (Other)
  Sender: FDA-Public Use
  Company Number: AUR-APL-2013-06655

PATIENT
  Age: 66 Year
  Sex: Female

DRUGS (5)
  1. TRIMETHOPRIM+SULFAMETHOXAZOLE [Suspect]
     Indication: NOCARDIOSIS
  2. LINEZOLID [Suspect]
     Indication: NOCARDIOSIS
  3. PREDNISONE (PREDNISONE) [Concomitant]
  4. WARFARIN (WARFARIN) [Concomitant]
  5. MEROPENEM (MEROPENEM) [Suspect]

REACTIONS (6)
  - Haemorrhage [None]
  - Rash pustular [None]
  - Ecthyma [None]
  - Endocarditis [None]
  - Vasculitis [None]
  - Pseudomonal sepsis [None]
